FAERS Safety Report 23044025 (Version 1)
Quarter: 2023Q4

REPORT INFORMATION
  Report Type: Spontaneous
  Country: US (occurrence: US)
  Receive Date: 20231009
  Receipt Date: 20231009
  Transmission Date: 20240110
  Serious: No
  Sender: FDA-Public Use
  Company Number: US-HORIZON THERAPEUTICS-HZN-2022-008464

PATIENT

DRUGS (1)
  1. KRYSTEXXA [Suspect]
     Active Substance: PEGLOTICASE
     Indication: Product used for unknown indication
     Dosage: UNK, EVERY 2 WEEKS
     Route: 042

REACTIONS (3)
  - Therapy non-responder [Unknown]
  - Pain [Unknown]
  - Swelling [Unknown]

NARRATIVE: CASE EVENT DATE: 20221029
